FAERS Safety Report 5843569-2 (Version None)
Quarter: 2008Q3

REPORT INFORMATION
  Report Type: 
  Country: None (occurrence: None)
  Receive Date: 20080813
  Receipt Date: 20080429
  Transmission Date: 20090109
  Serious: No
  Sender: FDA-Public Use
  Company Number: A0725348A

PATIENT
  Age: 90 Year
  Sex: Female

DRUGS (4)
  1. COREG CR [Suspect]
     Dosage: 20MG PER DAY
     Route: 048
     Dates: start: 20070101
  2. VITAMIN TAB [Concomitant]
  3. SLEEPING PILL [Concomitant]
  4. ACIPHEX [Concomitant]

REACTIONS (3)
  - HYPOAESTHESIA [None]
  - JOINT SWELLING [None]
  - WEIGHT DECREASED [None]
